FAERS Safety Report 6802885-8 (Version None)
Quarter: 2010Q2

REPORT INFORMATION
  Report Type: 
  Country: None (occurrence: None)
  Receive Date: 20100628
  Receipt Date: 20100617
  Transmission Date: 20101027
  Serious: Yes (Other)
  Sender: FDA-Public Use
  Company Number: NL-CELGENEUS-114-21880-10061838

PATIENT

DRUGS (6)
  1. REVLIMID [Suspect]
     Indication: MULTIPLE MYELOMA
     Route: 048
  2. THALIDOMIDE [Suspect]
     Indication: MULTIPLE MYELOMA
     Dosage: 200-100MG
     Route: 048
  3. PREDNISONE [Suspect]
     Indication: MULTIPLE MYELOMA
     Route: 065
  4. MELPHALAN HYDROCHLORIDE [Suspect]
     Indication: MULTIPLE MYELOMA
     Route: 065
  5. ASPIRINE [Concomitant]
     Indication: THROMBOSIS PROPHYLAXIS
     Route: 065
  6. LMWH [Concomitant]
     Route: 065

REACTIONS (4)
  - CARDIAC DISORDER [None]
  - EMBOLISM VENOUS [None]
  - FEBRILE NEUTROPENIA [None]
  - PYREXIA [None]
